FAERS Safety Report 15448496 (Version 1)
Quarter: 2018Q3

REPORT INFORMATION
  Report Type: Report from Study
  Country: None (occurrence: CO)
  Receive Date: 20180929
  Receipt Date: 20180929
  Transmission Date: 20181010
  Serious: Yes (Hospitalization)
  Sender: FDA-Public Use
  Company Number: CO-ABBVIE-18K-036-2503905-00

PATIENT
  Age: 30 Year
  Sex: Male
  Weight: 65 kg

DRUGS (2)
  1. HUMIRA [Suspect]
     Active Substance: ADALIMUMAB
     Indication: CROHN^S DISEASE
     Route: 058
     Dates: end: 20180824
  2. HUMIRA [Suspect]
     Active Substance: ADALIMUMAB
     Indication: CROHN^S DISEASE
     Route: 058
     Dates: start: 20120222

REACTIONS (5)
  - Vomiting [Recovering/Resolving]
  - Asphyxia [Recovering/Resolving]
  - Pneumonia [Recovering/Resolving]
  - Pain in extremity [Unknown]
  - Nail infection [Recovered/Resolved]

NARRATIVE: CASE EVENT DATE: 201807
